FAERS Safety Report 8129657-9 (Version None)
Quarter: 2012Q1

REPORT INFORMATION
  Report Type: 
  Country: None (occurrence: None)
  Receive Date: 20120210
  Receipt Date: 20120202
  Transmission Date: 20120608
  Serious: Yes (Other)
  Sender: FDA-Public Use
  Company Number: US-ABBOTT-12P-163-0900789-00

PATIENT
  Sex: Male

DRUGS (1)
  1. DEPAKOTE [Suspect]
     Indication: PRODUCT USED FOR UNKNOWN INDICATION
     Dosage: 750MG IN THE MORNING AND AT NIGHT

REACTIONS (3)
  - CONVULSION [None]
  - ANTICONVULSANT DRUG LEVEL DECREASED [None]
  - ANTICONVULSANT DRUG LEVEL INCREASED [None]
